FAERS Safety Report 8168831-2 (Version None)
Quarter: 2012Q1

REPORT INFORMATION
  Report Type: 
  Country: None (occurrence: None)
  Receive Date: 20120227
  Receipt Date: 20120222
  Transmission Date: 20120608
  Serious: Yes (Hospitalization, Other)
  Sender: FDA-Public Use
  Company Number: CHPA2011US08399

PATIENT
  Age: 77 Year
  Sex: Female
  Weight: 99.773 kg

DRUGS (6)
  1. BENEFIBER W/ WHEAT DEXTRIN [Suspect]
     Dosage: 1 SCOOP, DAILY
     Route: 048
     Dates: end: 20110622
  2. PLAVIX [Concomitant]
     Indication: CARDIAC DISORDER
     Dosage: 75 MG, QD
     Route: 048
  3. HUMULIN R [Concomitant]
     Indication: DIABETES MELLITUS
     Dosage: 8 TO 10 UNITS, QD
     Route: 058
  4. CHLORDIAZEPOXIDE W/CLIDINIUM BROMIDE [Concomitant]
     Dosage: 1 DF, PRN
  5. BENEFIBER W/ WHEAT DEXTRIN [Suspect]
     Indication: NUTRITIONAL SUPPORT
     Dosage: 2 SCOOPS, DAILY
     Route: 048
     Dates: start: 20110623
  6. HUMULIN N [Concomitant]
     Indication: DIABETES MELLITUS
     Dosage: 30-40 UNITS, BID
     Route: 058

REACTIONS (12)
  - WRONG TECHNIQUE IN DRUG USAGE PROCESS [None]
  - MALAISE [None]
  - GASTROINTESTINAL DISORDER [None]
  - ABDOMINAL PAIN [None]
  - BACTERIAL INFECTION [None]
  - PRODUCT CONTAMINATION PHYSICAL [None]
  - INFECTIOUS PERITONITIS [None]
  - GASTRIC DILATATION [None]
  - MUSCLE SPASMS [None]
  - VIRAL INFECTION [None]
  - DIARRHOEA [None]
  - VOMITING [None]
